FAERS Safety Report 4749825-3 (Version None)
Quarter: 2005Q3

REPORT INFORMATION
  Report Type: 
  Country: None (occurrence: None)
  Receive Date: 20050822
  Receipt Date: 20050815
  Transmission Date: 20060218
  Serious: Yes (Other)
  Sender: FDA-Public Use
  Company Number: 200516239US

PATIENT
  Age: 49 Year
  Sex: Male
  Weight: 81.2 kg

DRUGS (5)
  1. LANTUS [Suspect]
     Indication: DIABETES MELLITUS
     Dosage: DOSE UNIT: UNITS
     Dates: start: 20050601
  2. TYLENOL [Concomitant]
     Dosage: DOSE: 500 (2-3 TABLETS 1 TO 3 TIMES DAILY)
     Route: 048
  3. TUMS [Concomitant]
     Dosage: DOSE: PRN
  4. ROLAIDS [Concomitant]
     Dosage: DOSE: PRN
  5. PEPCID AC [Concomitant]
     Dosage: DOSE: PRN

REACTIONS (6)
  - BLOOD GLUCOSE INCREASED [None]
  - DISTURBANCE IN ATTENTION [None]
  - HYPOAESTHESIA [None]
  - INSOMNIA [None]
  - NEUROPATHIC PAIN [None]
  - NEUROPATHY [None]
